FAERS Safety Report 12698694 (Version 1)
Quarter: 2016Q3

REPORT INFORMATION
  Report Type: Spontaneous
  Country: US (occurrence: US)
  Receive Date: 20160830
  Receipt Date: 20160830
  Transmission Date: 20161109
  Serious: No
  Sender: FDA-Public Use
  Company Number: US-PERRIGO-16US018520

PATIENT
  Age: 53 Year
  Sex: Female
  Weight: 69.84 kg

DRUGS (1)
  1. EVAMIST [Suspect]
     Active Substance: ESTRADIOL
     Indication: HORMONE REPLACEMENT THERAPY
     Dosage: 1/4 SPRAY TO 1.53 MG, QD
     Route: 062
     Dates: start: 201607

REACTIONS (2)
  - No adverse event [Unknown]
  - Underdose [Unknown]

NARRATIVE: CASE EVENT DATE: 201607
